FAERS Safety Report 9553241 (Version 1)
Quarter: 2013Q3

REPORT INFORMATION
  Report Type: Report from Study
  Country: US (occurrence: US)
  Receive Date: 20130925
  Receipt Date: 20130925
  Transmission Date: 20140515
  Serious: Yes (Other)
  Sender: FDA-Public Use
  Company Number: US-ABBVIE-13P-163-1148554-00

PATIENT
  Age: 47 Year
  Sex: Female
  Weight: 113.95 kg

DRUGS (6)
  1. HUMIRA [Suspect]
     Indication: RHEUMATOID ARTHRITIS
     Dates: start: 2004
  2. METHOTREXATE [Concomitant]
     Indication: RHEUMATOID ARTHRITIS
  3. DICLOFENAC [Concomitant]
     Indication: RHEUMATOID ARTHRITIS
  4. UNKNOWN MEDICATION [Concomitant]
     Indication: BLOOD CHOLESTEROL
  5. UNKNOWN BIRTH CONTROL [Concomitant]
     Indication: CONTRACEPTION
  6. UNKNOWN MEDICATION [Concomitant]
     Indication: BLOOD PRESSURE

REACTIONS (5)
  - Diabetes mellitus [Not Recovered/Not Resolved]
  - Pneumonia [Recovered/Resolved]
  - Respiratory tract infection [Recovered/Resolved]
  - Drug dose omission [Not Recovered/Not Resolved]
  - Memory impairment [Not Recovered/Not Resolved]
